FAERS Safety Report 9271316 (Version 4)
Quarter: 2013Q2

REPORT INFORMATION
  Report Type: Spontaneous
  Country: US (occurrence: US)
  Receive Date: 20130506
  Receipt Date: 20130523
  Transmission Date: 20140414
  Serious: Yes (Hospitalization)
  Sender: FDA-Public Use
  Company Number: US-JNJFOC-20130415710

PATIENT
  Age: 50 Year
  Sex: Male

DRUGS (2)
  1. XARELTO [Suspect]
     Indication: CEREBROVASCULAR ACCIDENT PROPHYLAXIS
     Route: 048
  2. XARELTO [Suspect]
     Indication: ATRIAL FIBRILLATION
     Route: 048

REACTIONS (6)
  - Fall [Recovered/Resolved]
  - Laceration [Recovered/Resolved]
  - Haemorrhage [Recovered/Resolved]
  - Blood pressure decreased [Recovered/Resolved]
  - Cardiac arrest [Recovered/Resolved]
  - Inappropriate schedule of drug administration [Unknown]
